FAERS Safety Report 20291277 (Version 1)
Quarter: 2022Q1

REPORT INFORMATION
  Report Type: Spontaneous
  Country: US (occurrence: None)
  Receive Date: 20220103
  Receipt Date: 20220103
  Transmission Date: 20220423
  Serious: Yes (Other)
  Sender: FDA-Public Use
  Company Number: None

PATIENT
  Sex: Female
  Weight: 74.7 kg

DRUGS (3)
  1. TIZANIDINE [Suspect]
     Active Substance: TIZANIDINE
     Indication: Autonomic nervous system imbalance
     Dosage: OTHER QUANTITY : 8 MG;?OTHER FREQUENCY : DAILY;?
     Dates: start: 20211223, end: 20220102
  2. THYROID [Concomitant]
     Active Substance: LEVOTHYROXINE\LIOTHYRONINE
  3. ATENOLOL [Concomitant]
     Active Substance: ATENOLOL

REACTIONS (8)
  - Therapy non-responder [None]
  - Nausea [None]
  - Blood glucose increased [None]
  - Hypophagia [None]
  - Vomiting [None]
  - Abdominal pain [None]
  - Back pain [None]
  - Flank pain [None]
